FAERS Safety Report 7061945-X (Version None)
Quarter: 2010Q4

REPORT INFORMATION
  Report Type: 
  Country: None (occurrence: None)
  Receive Date: 20101026
  Receipt Date: 20101019
  Transmission Date: 20110411
  Serious: Yes (Death, Hospitalization)
  Sender: FDA-Public Use
  Company Number: FR-MERCK-1010FRA00067

PATIENT
  Age: 59 Year
  Sex: Female

DRUGS (7)
  1. SINGULAIR [Suspect]
     Indication: ASTHMA
     Route: 048
     Dates: start: 20100910, end: 20100916
  2. IVABRADINE HYDROCHLORIDE [Suspect]
     Route: 048
     Dates: start: 20100915, end: 20100915
  3. EBASTINE [Suspect]
     Route: 048
     Dates: start: 20090101, end: 20100916
  4. VERAPAMIL HYDROCHLORIDE [Suspect]
     Route: 048
     Dates: start: 20100301, end: 20100916
  5. HYDROCHLOROTHIAZIDE AND VALSARTAN [Concomitant]
     Route: 065
     Dates: start: 20080201
  6. FLUINDIONE [Concomitant]
     Route: 065
     Dates: start: 20100201
  7. FLUTICASONE PROPIONATE AND SALMETEROL XINAFOATE [Concomitant]
     Route: 065
     Dates: start: 20090301

REACTIONS (1)
  - CARDIO-RESPIRATORY ARREST [None]
